FAERS Safety Report 4878957-4 (Version None)
Quarter: 2006Q1

REPORT INFORMATION
  Report Type: 
  Country: None (occurrence: None)
  Receive Date: 20060110
  Receipt Date: 20060110
  Transmission Date: 20060701
  Serious: Yes (Hospitalization, Other)
  Sender: FDA-Public Use
  Company Number: None

PATIENT
  Sex: Female
  Weight: 90.7194 kg

DRUGS (1)
  1. ORTHO EVRA [Suspect]
     Indication: CONTRACEPTION
     Dosage: 1 PATCH 1 PATCH/WEEK TRANSDERMAL
     Route: 062
     Dates: start: 20050715, end: 20050701

REACTIONS (4)
  - GALLBLADDER DISORDER [None]
  - PHARYNGITIS STREPTOCOCCAL [None]
  - PYREXIA [None]
  - VISUAL FIELD DEFECT [None]
